FAERS Safety Report 14239368 (Version 1)
Quarter: 2017Q4

REPORT INFORMATION
  Report Type: Spontaneous
  Country: US (occurrence: US)
  Receive Date: 20171127
  Receipt Date: 20171127
  Transmission Date: 20180321
  Serious: Yes (Hospitalization, Other)
  Sender: FDA-Public Use
  Company Number: None

PATIENT
  Age: 76 Year
  Sex: Male
  Weight: 90 kg

DRUGS (11)
  1. ATENOLOL. [Concomitant]
     Active Substance: ATENOLOL
  2. CRESTOR [Concomitant]
     Active Substance: ROSUVASTATIN CALCIUM
  3. ANTIHISTAMINE [Concomitant]
     Active Substance: ANTIHISTAMINES NOS
  4. VITAMIN [Concomitant]
     Active Substance: VITAMINS
  5. LOSARTAN-HYDROCHLOROTHIAZIDE [Concomitant]
     Active Substance: HYDROCHLOROTHIAZIDE\LOSARTAN
  6. MULTI VITAMIN [Concomitant]
     Active Substance: VITAMINS
  7. GARLIC. [Concomitant]
     Active Substance: GARLIC
  8. ASPRIN [Concomitant]
     Active Substance: ASPIRIN
  9. NEBIVOLOL. [Suspect]
     Active Substance: NEBIVOLOL
     Indication: HYPERTENSION
     Dosage: ?          QUANTITY:10 TABLET(S);?
     Route: 048
     Dates: start: 20171008, end: 20171018
  10. KEPPRA [Concomitant]
     Active Substance: LEVETIRACETAM
  11. COQ10 [Concomitant]
     Active Substance: UBIDECARENONE

REACTIONS (7)
  - Fatigue [None]
  - Peripheral coldness [None]
  - Lethargy [None]
  - Apathy [None]
  - Hypoaesthesia [None]
  - Blue toe syndrome [None]
  - Loss of consciousness [None]

NARRATIVE: CASE EVENT DATE: 20171015
